FAERS Safety Report 23093033 (Version 6)
Quarter: 2024Q4

REPORT INFORMATION
  Report Type: Spontaneous
  Country: US (occurrence: US)
  Receive Date: 20231021
  Receipt Date: 20241022
  Transmission Date: 20250115
  Serious: Yes (Other)
  Sender: SANOFI AVENTIS
  Company Number: US-SA-SAC20231020000432

PATIENT
  Age: 52 Year
  Sex: Male

DRUGS (2)
  1. DUPIXENT [Suspect]
     Active Substance: DUPILUMAB
     Indication: Neurodermatitis
     Dosage: 600 MG, 1X
     Route: 065
     Dates: start: 202304, end: 202304
  2. DUPIXENT [Suspect]
     Active Substance: DUPILUMAB
     Dosage: 300 MG, QOW
     Route: 058

REACTIONS (7)
  - Pneumonia [Unknown]
  - Sinus disorder [Unknown]
  - Dyspnoea [Unknown]
  - Illness [Unknown]
  - Vertigo [Unknown]
  - Intentional dose omission [Unknown]
  - Nasal septal operation [Unknown]

NARRATIVE: CASE EVENT DATE: 20230101
